FAERS Safety Report 13474285 (Version 2)
Quarter: 2017Q2

REPORT INFORMATION
  Report Type: Report from Study
  Country: US (occurrence: US)
  Receive Date: 20170424
  Receipt Date: 20170516
  Transmission Date: 20170830
  Serious: Yes (Other)
  Sender: FDA-Public Use
  Company Number: US-MUNDIPHARMA DS AND PHARMACOVIGILANCE-USA-2017-0138264

PATIENT
  Sex: Male

DRUGS (4)
  1. PERCOCET                           /00446701/ [Suspect]
     Active Substance: ACETAMINOPHEN\OXYCODONE HYDROCHLORIDE\OXYCODONE TEREPHTHALATE
     Indication: PRODUCT USED FOR UNKNOWN INDICATION
     Dosage: UNK (5-6 DF), DAILY
     Route: 065
  2. OXYCODONE HYDROCHLORIDE. [Suspect]
     Active Substance: OXYCODONE HYDROCHLORIDE
     Indication: PAIN
     Dosage: 80 MG, BID
     Route: 048
  3. OXYCODONE HYDROCHLORIDE. [Suspect]
     Active Substance: OXYCODONE HYDROCHLORIDE
     Dosage: 160 MG (40MG TABLET X 4), UNK
     Route: 048
     Dates: start: 1995
  4. OXYCODONE HYDROCHLORIDE. [Suspect]
     Active Substance: OXYCODONE HYDROCHLORIDE
     Dosage: 320 MG (80MG TABLET X 4), UNK
     Route: 048
     Dates: start: 1995

REACTIONS (9)
  - Hallucination [Unknown]
  - Paralysis [Unknown]
  - Unevaluable event [Unknown]
  - Fall [Unknown]
  - Spinal operation [Unknown]
  - Diabetes mellitus [Unknown]
  - Drug withdrawal syndrome [Unknown]
  - Cardiac operation [Unknown]
  - Nervousness [Unknown]
